FAERS Safety Report 6653941-9 (Version None)
Quarter: 2010Q1

REPORT INFORMATION
  Report Type: 
  Country: None (occurrence: None)
  Receive Date: 20100326
  Receipt Date: 20091204
  Transmission Date: 20100710
  Serious: No
  Sender: FDA-Public Use
  Company Number: US-BAUSCH-2009BL006378

PATIENT
  Age: 42 Year
  Sex: Female
  Weight: 47 kg

DRUGS (2)
  1. BESIVANCE [Suspect]
     Indication: CORNEAL ABRASION
     Route: 047
     Dates: start: 20091127, end: 20091127
  2. BESIVANCE [Suspect]
     Indication: OFF LABEL USE
     Route: 047
     Dates: start: 20091127, end: 20091127

REACTIONS (2)
  - FEELING JITTERY [None]
  - INSOMNIA [None]
